FAERS Safety Report 6447002-1 (Version None)
Quarter: 2009Q4

REPORT INFORMATION
  Report Type: 
  Country: None (occurrence: None)
  Receive Date: 20091119
  Receipt Date: 20091113
  Transmission Date: 20100525
  Serious: Yes (Other)
  Sender: FDA-Public Use
  Company Number: IE-BRISTOL-MYERS SQUIBB COMPANY-14857403

PATIENT
  Age: 41 Year
  Sex: Female

DRUGS (1)
  1. VELOSEF [Suspect]
     Dosage: HARD CAPS
     Route: 048
     Dates: start: 20091014

REACTIONS (1)
  - LIVER FUNCTION TEST ABNORMAL [None]
